FAERS Safety Report 18047712 (Version 1)
Quarter: 2020Q3

REPORT INFORMATION
  Report Type: Spontaneous
  Country: US (occurrence: US)
  Receive Date: 20200721
  Receipt Date: 20200721
  Transmission Date: 20201103
  Serious: Yes (Other)
  Sender: FDA-Public Use
  Company Number: US-STRIDES ARCOLAB LIMITED-2019SP006016

PATIENT
  Age: 26 Year
  Sex: Female

DRUGS (31)
  1. DONEPEZIL. [Suspect]
     Active Substance: DONEPEZIL
     Dosage: ON HD 47, THE BEDTIME DOSE WAS TITRATED TO 10 MG FOR A TOTAL OF 15 MG DAILY
     Route: 065
  2. DONEPEZIL. [Suspect]
     Active Substance: DONEPEZIL
     Dosage: ON HD 56, DOSE WAS FURTHER TITRATED TO 10 MG TWICE DAILY
     Route: 065
  3. DONEPEZIL. [Suspect]
     Active Substance: DONEPEZIL
     Dosage: 10 MG TWICE DAILY (AT THE TIME OF EKG)
     Route: 065
  4. METOPROLOL. [Concomitant]
     Active Substance: METOPROLOL
     Indication: TACHYCARDIA
     Dosage: 25 MG DAILY (EXTENDED?RELEASE)
     Route: 065
  5. MONTELUKAST [Concomitant]
     Active Substance: MONTELUKAST SODIUM
     Indication: ASTHMA
     Dosage: 10 MG DAILY
     Route: 065
  6. PANTOPRAZOLE [Concomitant]
     Active Substance: PANTOPRAZOLE
     Indication: GASTROOESOPHAGEAL REFLUX DISEASE
     Dosage: 40 MG DAILY IN THE MORNING
     Route: 065
  7. SERTRALINE [Concomitant]
     Active Substance: SERTRALINE HYDROCHLORIDE
     Indication: PRODUCT USED FOR UNKNOWN INDICATION
     Dosage: 50 MG, UNKNOWN
     Route: 065
  8. DONEPEZIL. [Suspect]
     Active Substance: DONEPEZIL
     Indication: CRANIOCEREBRAL INJURY
     Dosage: 5 MG AT BEDTIME
     Route: 065
  9. QUETIAPINE. [Concomitant]
     Active Substance: QUETIAPINE
     Dosage: 50 MG THREE TIMES DAILY
     Route: 065
  10. QUETIAPINE. [Concomitant]
     Active Substance: QUETIAPINE
     Dosage: 50 MG TWICE DAILY (ON HD 68)
     Route: 065
  11. QUETIAPINE. [Concomitant]
     Active Substance: QUETIAPINE
     Dosage: 25 MG (FIVE DOSES TOTAL WITH TWO GIVEN ON HD 76
     Route: 065
  12. QUETIAPINE. [Concomitant]
     Active Substance: QUETIAPINE
     Indication: AGITATION
     Dosage: 200 MG AT NOON
     Route: 065
  13. QUETIAPINE. [Concomitant]
     Active Substance: QUETIAPINE
     Dosage: 100 MG, SINGLE (1 PRN DOSE)
     Route: 065
  14. DIVALPROEX SODIUM. [Concomitant]
     Active Substance: DIVALPROEX SODIUM
     Indication: AFFECTIVE DISORDER
  15. OLANZAPINE. [Concomitant]
     Active Substance: OLANZAPINE
     Indication: PRODUCT USED FOR UNKNOWN INDICATION
     Dosage: 10 MG, SINGLE (1 PRN DOSE)
     Route: 065
  16. DONEPEZIL. [Suspect]
     Active Substance: DONEPEZIL
     Dosage: 50 MG THREE TIMES DAILY
     Route: 065
  17. CEPHALEXIN                         /00145501/ [Concomitant]
     Active Substance: CEPHALEXIN
     Indication: CELLULITIS
     Dosage: 500 MG FOUR TIMES DAILY
     Route: 065
  18. DIPHENHYDRAMINE. [Concomitant]
     Active Substance: DIPHENHYDRAMINE
     Indication: AGITATION
     Dosage: 50 MG, UNKNOWN
     Route: 030
  19. DONEPEZIL. [Suspect]
     Active Substance: DONEPEZIL
     Dosage: REDUCED TO 10 MG IN THE MORNING
     Route: 065
  20. QUETIAPINE. [Concomitant]
     Active Substance: QUETIAPINE
     Indication: AFFECTIVE DISORDER
     Dosage: 100 MG IN THE MORNING
     Route: 065
  21. QUETIAPINE. [Concomitant]
     Active Substance: QUETIAPINE
     Indication: AGGRESSION
     Dosage: 300 MG AT BEDTIME
     Route: 065
  22. QUETIAPINE. [Concomitant]
     Active Substance: QUETIAPINE
     Dosage: 50 MG TWICE DAILY (ON HD 66)
     Route: 065
  23. DIVALPROEX SODIUM. [Concomitant]
     Active Substance: DIVALPROEX SODIUM
     Indication: SEIZURE
     Dosage: 500 MG, TWICE DAILY (EXTENDED?RELEASE)
     Route: 065
  24. DONEPEZIL. [Suspect]
     Active Substance: DONEPEZIL
     Dosage: DOSE INCREASED TO 5 MG TWICE DAILY (HD 42)
     Route: 065
  25. QUETIAPINE. [Concomitant]
     Active Substance: QUETIAPINE
     Dosage: 50 MG THREE TIMES DAILY
  26. CALCIUM +VIT D [Concomitant]
     Active Substance: CALCIUM\VITAMIN D
     Indication: MALNUTRITION
     Dosage: UNK (DAILY)
     Route: 065
  27. PANTOPRAZOLE [Concomitant]
     Active Substance: PANTOPRAZOLE
     Dosage: 40 MG DAILY IN THE MORNING (AT THE TIME OF EKG)
     Route: 065
  28. DONEPEZIL. [Suspect]
     Active Substance: DONEPEZIL
     Indication: COGNITIVE REHABILITATION
     Dosage: 5 MG DAILY IN THE MORNING
     Route: 065
  29. QUETIAPINE. [Concomitant]
     Active Substance: QUETIAPINE
     Dosage: 50 MG THREE TIMES DAILY
     Route: 065
  30. QUETIAPINE. [Concomitant]
     Active Substance: QUETIAPINE
     Dosage: 25 MG, SINGLE
     Route: 048
  31. POLYETHYLENE GLYCOL 3350. [Concomitant]
     Active Substance: POLYETHYLENE GLYCOL 3350
     Indication: CONSTIPATION
     Dosage: 17 G DAILY
     Route: 065

REACTIONS (1)
  - Electrocardiogram QT prolonged [Recovered/Resolved]
